FAERS Safety Report 11212140 (Version 1)
Quarter: 2015Q2

REPORT INFORMATION
  Report Type: Spontaneous
  Country: US (occurrence: US)
  Receive Date: 20150623
  Receipt Date: 20150623
  Transmission Date: 20150821
  Serious: Yes (Hospitalization)
  Sender: FDA-Public Use
  Company Number: PHHY2015US072592

PATIENT
  Age: 50 Year
  Sex: Male

DRUGS (1)
  1. QUETIAPINE [Suspect]
     Active Substance: QUETIAPINE
     Indication: BIPOLAR DISORDER
     Route: 065

REACTIONS (7)
  - Pancreatitis acute [Recovering/Resolving]
  - Diabetes mellitus [Recovering/Resolving]
  - Nausea [Unknown]
  - Neutropenia [Recovering/Resolving]
  - Abdominal pain upper [Unknown]
  - Pancytopenia [Recovering/Resolving]
  - Hypertriglyceridaemia [Recovering/Resolving]
